FAERS Safety Report 19539009 (Version 2)
Quarter: 2021Q3

REPORT INFORMATION
  Report Type: Spontaneous
  Country: CA (occurrence: CA)
  Receive Date: 20210713
  Receipt Date: 20210723
  Transmission Date: 20211014
  Serious: Yes (Other)
  Sender: FDA-Public Use
  Company Number: CA-BAUSCH-BL-2021-024245

PATIENT
  Age: 11 Year
  Sex: Female

DRUGS (9)
  1. CEFTRIAXONE. [Suspect]
     Active Substance: CEFTRIAXONE
     Indication: MENINGITIS STREPTOCOCCAL
     Route: 042
  2. VANCOMYCIN [Suspect]
     Active Substance: VANCOMYCIN
     Indication: CENTRAL NERVOUS SYSTEM VASCULITIS
  3. DEXAMETHASONE. [Suspect]
     Active Substance: DEXAMETHASONE
     Indication: MENINGITIS STREPTOCOCCAL
  4. ACYCLOVIR. [Suspect]
     Active Substance: ACYCLOVIR
     Indication: MENINGITIS STREPTOCOCCAL
     Route: 042
  5. ACYCLOVIR. [Suspect]
     Active Substance: ACYCLOVIR
     Indication: CENTRAL NERVOUS SYSTEM VASCULITIS
  6. CEFTRIAXONE. [Suspect]
     Active Substance: CEFTRIAXONE
     Indication: CENTRAL NERVOUS SYSTEM VASCULITIS
  7. VANCOMYCIN [Suspect]
     Active Substance: VANCOMYCIN
     Indication: MENINGITIS STREPTOCOCCAL
     Route: 042
  8. LEVETIRACETAM. [Concomitant]
     Active Substance: LEVETIRACETAM
     Indication: PROPHYLAXIS
  9. DEXAMETHASONE. [Suspect]
     Active Substance: DEXAMETHASONE
     Indication: CENTRAL NERVOUS SYSTEM VASCULITIS
     Route: 042

REACTIONS (1)
  - Therapy non-responder [Unknown]
